FAERS Safety Report 18821620 (Version 1)
Quarter: 2021Q1

REPORT INFORMATION
  Report Type: Spontaneous
  Country: US (occurrence: US)
  Receive Date: 20210201
  Receipt Date: 20210201
  Transmission Date: 20210419
  Serious: Yes (Hospitalization)
  Sender: FDA-Public Use
  Company Number: None

PATIENT
  Age: 78 Year
  Sex: Female

DRUGS (9)
  1. PANTOPRAZOLE [Concomitant]
     Active Substance: PANTOPRAZOLE
  2. SYNTHROID [Concomitant]
     Active Substance: LEVOTHYROXINE SODIUM
  3. NADOLOL. [Concomitant]
     Active Substance: NADOLOL
  4. TADALAFIL 20MG TAB [Suspect]
     Active Substance: TADALAFIL
     Indication: PULMONARY HYPERTENSION
     Route: 048
     Dates: start: 20201017
  5. AMBRISENTAN [Concomitant]
     Active Substance: AMBRISENTAN
  6. HUMALOG MIX [Concomitant]
     Active Substance: INSULIN LISPRO
  7. ATORVASTATIN [Concomitant]
     Active Substance: ATORVASTATIN
  8. FUROSEMIDE. [Concomitant]
     Active Substance: FUROSEMIDE
  9. SPIRONOLACT [Concomitant]
     Active Substance: SPIRONOLACTONE

REACTIONS (4)
  - Dyspepsia [None]
  - Decreased appetite [None]
  - Fatigue [None]
  - Dizziness [None]

NARRATIVE: CASE EVENT DATE: 20201231
